FAERS Safety Report 17174415 (Version 1)
Quarter: 2019Q4

REPORT INFORMATION
  Report Type: Spontaneous
  Country: SE (occurrence: SE)
  Receive Date: 20191219
  Receipt Date: 20191219
  Transmission Date: 20200122
  Serious: Yes (Hospitalization, Other)
  Sender: FDA-Public Use
  Company Number: SE-SA-2019SA346116

PATIENT
  Sex: Female

DRUGS (3)
  1. ZOLPIDEM TARTRATE. [Suspect]
     Active Substance: ZOLPIDEM TARTRATE
     Dosage: 300 MG, UNK
     Route: 048
     Dates: start: 20190422, end: 20190422
  2. OXAZEPAM. [Suspect]
     Active Substance: OXAZEPAM
     Dosage: 625 MG, UNK
     Route: 048
     Dates: start: 20190422, end: 20190422
  3. PROPAVAN [Suspect]
     Active Substance: PROPIOMAZINE
     Dosage: 20-30 TABLETS
     Route: 048
     Dates: start: 20190422, end: 20190422

REACTIONS (4)
  - Fatigue [Unknown]
  - Tachycardia [Unknown]
  - Intentional overdose [Unknown]
  - Intentional self-injury [Unknown]

NARRATIVE: CASE EVENT DATE: 201904
